FAERS Safety Report 25573614 (Version 1)
Quarter: 2025Q3

REPORT INFORMATION
  Report Type: Spontaneous
  Country: US (occurrence: None)
  Receive Date: 20250717
  Receipt Date: 20250717
  Transmission Date: 20251021
  Serious: Yes (Other)
  Sender: FDA-CTU
  Company Number: None

PATIENT
  Age: 56 Year
  Sex: Female
  Weight: 61.65 kg

DRUGS (6)
  1. VTAMA [Suspect]
     Active Substance: TAPINAROF
     Indication: Hand dermatitis
     Dosage: FREQUENCY : AT BEDTIME;?
     Route: 061
     Dates: start: 20240718, end: 20250221
  2. Fenofibric acid 135 mg daily [Concomitant]
  3. Icosapent Ethyl 4g daily [Concomitant]
  4. Vitamin D 50,000 IU weekly [Concomitant]
  5. DEVICE [Concomitant]
     Active Substance: DEVICE
  6. Calcium daily [Concomitant]

REACTIONS (8)
  - Erythema [None]
  - Erythema [None]
  - Erythema [None]
  - Skin swelling [None]
  - Pruritus [None]
  - Feeling hot [None]
  - Skin exfoliation [None]
  - Skin hyperpigmentation [None]

NARRATIVE: CASE EVENT DATE: 20250221
